FAERS Safety Report 14417288 (Version 1)
Quarter: 2018Q1

REPORT INFORMATION
  Report Type: Spontaneous
  Country: US (occurrence: US)
  Receive Date: 20180122
  Receipt Date: 20180122
  Transmission Date: 20180509
  Serious: Yes (Disabling, Other)
  Sender: FDA-Public Use
  Company Number: PHEH2018US002062

PATIENT
  Age: 8 Year
  Sex: Female
  Weight: 31.1 kg

DRUGS (1)
  1. TRILEPTAL [Suspect]
     Active Substance: OXCARBAZEPINE
     Indication: SEIZURE
     Dosage: 300 MG/KG, BID
     Route: 048
     Dates: start: 20180101, end: 20180108

REACTIONS (12)
  - Swelling face [Unknown]
  - Lip blister [Unknown]
  - Blister [Unknown]
  - Urticaria [Unknown]
  - Skin exfoliation [Unknown]
  - Erythema [Unknown]
  - Rash generalised [Not Recovered/Not Resolved]
  - Skin lesion [Unknown]
  - Swelling [Unknown]
  - Pyrexia [Unknown]
  - Arthralgia [Unknown]
  - Pruritus [Unknown]

NARRATIVE: CASE EVENT DATE: 20180101
